FAERS Safety Report 7469016-5 (Version None)
Quarter: 2011Q2

REPORT INFORMATION
  Report Type: 
  Country: None (occurrence: None)
  Receive Date: 20110510
  Receipt Date: 20110429
  Transmission Date: 20111010
  Serious: Yes (Hospitalization, Other)
  Sender: FDA-Public Use
  Company Number: US-JNJFOC-20100901286

PATIENT
  Sex: Male

DRUGS (8)
  1. AZITHROMYCIN [Suspect]
     Indication: ASTHMA
     Route: 065
  2. LEVAQUIN [Suspect]
     Indication: ASTHMA
     Route: 048
  3. AZITHROMYCIN [Suspect]
     Indication: UPPER RESPIRATORY TRACT INFECTION
     Route: 065
  4. PREDNISONE TAB [Suspect]
     Indication: ASTHMA
     Route: 065
  5. AUGMENTIN [Suspect]
     Indication: ASTHMA
     Route: 065
  6. LEVAQUIN [Suspect]
     Indication: UPPER RESPIRATORY TRACT INFECTION
     Route: 048
  7. AUGMENTIN [Suspect]
     Indication: UPPER RESPIRATORY TRACT INFECTION
     Route: 065
  8. PREDNISONE TAB [Suspect]
     Indication: UPPER RESPIRATORY TRACT INFECTION
     Route: 065

REACTIONS (5)
  - DARK CIRCLES UNDER EYES [None]
  - STEVENS-JOHNSON SYNDROME [None]
  - RESPIRATORY TRACT INFECTION [None]
  - RASH [None]
  - ERYTHEMA MULTIFORME [None]
